FAERS Safety Report 8541589-0 (Version None)
Quarter: 2012Q3

REPORT INFORMATION
  Report Type: 
  Country: None (occurrence: None)
  Receive Date: 20120726
  Receipt Date: 20120725
  Transmission Date: 20120928
  Serious: Yes (Other)
  Sender: FDA-Public Use
  Company Number: US-BAYER-2012-074940

PATIENT
  Age: 67 Year
  Sex: Female

DRUGS (2)
  1. BETASERON [Suspect]
     Indication: RELAPSING-REMITTING MULTIPLE SCLEROSIS
     Dosage: 8 MIU, QOD
     Route: 058
     Dates: start: 20081223
  2. BETASERON [Suspect]
     Dosage: UNK
     Dates: start: 20080820, end: 20081209

REACTIONS (3)
  - GAIT DISTURBANCE [None]
  - WALKING AID USER [None]
  - ABASIA [None]
